FAERS Safety Report 5583252-4 (Version None)
Quarter: 2008Q1

REPORT INFORMATION
  Report Type: 
  Country: None (occurrence: None)
  Receive Date: 20080107
  Receipt Date: 20050316
  Transmission Date: 20080703
  Serious: Yes (Other)
  Sender: FDA-Public Use
  Company Number: US-ASTRAZENECA-2004UW15372

PATIENT
  Age: 32626 Day
  Sex: Female
  Weight: 55 kg

DRUGS (7)
  1. CRESTOR [Suspect]
     Indication: HYPERLIPIDAEMIA
     Route: 048
     Dates: start: 20040213, end: 20040408
  2. ATENOLOL [Concomitant]
     Route: 048
  3. NORVASC [Concomitant]
  4. VITAMIN E [Concomitant]
  5. VITAMIN B-12 [Concomitant]
  6. ARTIFICIAL TEARS [Concomitant]
  7. DYAZIDE [Concomitant]

REACTIONS (3)
  - MUSCLE ATROPHY [None]
  - MUSCULAR WEAKNESS [None]
  - THROMBOCYTOPENIA [None]
